FAERS Safety Report 9278324 (Version 1)
Quarter: 2013Q2

REPORT INFORMATION
  Report Type: Report from Study
  Country: KR (occurrence: KR)
  Receive Date: 20130508
  Receipt Date: 20130508
  Transmission Date: 20140414
  Serious: Yes (Hospitalization)
  Sender: FDA-Public Use
  Company Number: KR-SANOFI-AVENTIS-2013SA044204

PATIENT
  Age: 58 Year
  Sex: Female
  Weight: 46.6 kg

DRUGS (5)
  1. RILUZOLE [Suspect]
     Indication: AMYOTROPHIC LATERAL SCLEROSIS
     Route: 048
     Dates: start: 20121008
  2. VITAMINUM B COMP. [Concomitant]
     Route: 048
     Dates: start: 20120705
  3. VITAMIN C [Concomitant]
     Route: 048
     Dates: start: 20120705
  4. CURAM [Concomitant]
     Route: 048
     Dates: start: 20120705
  5. Q10 [Concomitant]
     Route: 048
     Dates: start: 20010726

REACTIONS (1)
  - Forearm fracture [Recovered/Resolved with Sequelae]
